FAERS Safety Report 19401571 (Version 1)
Quarter: 2021Q2

REPORT INFORMATION
  Report Type: Spontaneous
  Country: CA (occurrence: CA)
  Receive Date: 20210610
  Receipt Date: 20210610
  Transmission Date: 20210717
  Serious: Yes (Other)
  Sender: FDA-Public Use
  Company Number: CA-GLAXOSMITHKLINE-CA2021AMR121424

PATIENT
  Sex: Female
  Weight: 63 kg

DRUGS (2)
  1. BENLYSTA [Suspect]
     Active Substance: BELIMUMAB
     Dosage: 640 MG, UNK
  2. BENLYSTA [Suspect]
     Active Substance: BELIMUMAB
     Indication: SYSTEMIC LUPUS ERYTHEMATOSUS
     Dosage: 640 MG, UNK
     Dates: start: 20180614

REACTIONS (5)
  - Thought blocking [Recovered/Resolved]
  - Systemic lupus erythematosus [Unknown]
  - Migraine [Unknown]
  - Aura [Recovered/Resolved]
  - Product dose omission issue [Unknown]
